FAERS Safety Report 5579194-0 (Version None)
Quarter: 2008Q1

REPORT INFORMATION
  Report Type: 
  Country: None (occurrence: None)
  Receive Date: 20080102
  Receipt Date: 20071226
  Transmission Date: 20080703
  Serious: Yes (Life-Threatening, Hospitalization)
  Sender: FDA-Public Use
  Company Number: B0497897A

PATIENT
  Age: 33 Year
  Sex: Female
  Weight: 71.6 kg

DRUGS (4)
  1. COMBIVIR [Suspect]
     Indication: ANTIVIRAL PROPHYLAXIS
     Route: 048
     Dates: start: 20070911
  2. NEVIRAPINE [Suspect]
     Indication: ANTIVIRAL PROPHYLAXIS
     Dosage: 200MG TWICE PER DAY
     Route: 048
     Dates: start: 20070911
  3. CODEINE [Concomitant]
     Dates: start: 20071024, end: 20071029
  4. FERROUS SULFATE TAB [Concomitant]

REACTIONS (8)
  - ABDOMINAL PAIN [None]
  - HEADACHE [None]
  - HYPERTENSION [None]
  - INTRA-UTERINE DEATH [None]
  - OEDEMA PERIPHERAL [None]
  - PRE-ECLAMPSIA [None]
  - PROTEINURIA [None]
  - STILLBIRTH [None]
